FAERS Safety Report 5612650-5 (Version None)
Quarter: 2008Q1

REPORT INFORMATION
  Report Type: 
  Country: None (occurrence: None)
  Receive Date: 20080204
  Receipt Date: 20080125
  Transmission Date: 20080703
  Serious: Yes (Other)
  Sender: FDA-Public Use
  Company Number: US-JNJFOC-20080106650

PATIENT
  Age: 32 Year
  Sex: Female

DRUGS (1)
  1. NECON 7/7/7 [Suspect]
     Indication: CONTRACEPTION
     Route: 048

REACTIONS (6)
  - ALANINE AMINOTRANSFERASE INCREASED [None]
  - ASPARTATE AMINOTRANSFERASE INCREASED [None]
  - BLOOD BILIRUBIN INCREASED [None]
  - JAUNDICE [None]
  - PRURITUS [None]
  - VOMITING [None]
